FAERS Safety Report 7986765-0 (Version None)
Quarter: 2011Q4

REPORT INFORMATION
  Report Type: 
  Country: None (occurrence: None)
  Receive Date: 20111216
  Receipt Date: 20110223
  Transmission Date: 20120403
  Serious: No
  Sender: FDA-Public Use
  Company Number: US-BRISTOL-MYERS SQUIBB COMPANY-15565187

PATIENT
  Age: 59 Year
  Sex: Female
  Weight: 58 kg

DRUGS (4)
  1. ABILIFY [Suspect]
  2. VITAMIN B COMPLEX CAP [Concomitant]
  3. LEXAPRO [Concomitant]
  4. VITAMIN D [Concomitant]

REACTIONS (1)
  - INSOMNIA [None]
